FAERS Safety Report 5600574-9 (Version None)
Quarter: 2008Q1

REPORT INFORMATION
  Report Type: 
  Country: None (occurrence: None)
  Receive Date: 20080123
  Receipt Date: 20080114
  Transmission Date: 20080703
  Serious: Yes (Other)
  Sender: FDA-Public Use
  Company Number: US-ABBOTT-08P-163-0432500-00

PATIENT
  Sex: Female
  Weight: 48.578 kg

DRUGS (4)
  1. SYNTHROID [Suspect]
     Indication: THYROIDECTOMY
     Route: 048
     Dates: start: 20060401
  2. SYNTHROID [Suspect]
     Route: 048
     Dates: start: 20060101, end: 20071201
  3. SYNTHROID [Suspect]
     Route: 048
     Dates: start: 20071201
  4. METOCLOPRAMIDE [Concomitant]
     Indication: IMPAIRED GASTRIC EMPTYING
     Route: 048
     Dates: start: 20071214

REACTIONS (3)
  - BREAST CANCER [None]
  - HYPERTHYROIDISM [None]
  - IMPAIRED GASTRIC EMPTYING [None]
